FAERS Safety Report 7440041-3 (Version None)
Quarter: 2011Q2

REPORT INFORMATION
  Report Type: 
  Country: None (occurrence: None)
  Receive Date: 20110427
  Receipt Date: 20101214
  Transmission Date: 20111010
  Serious: Yes (Hospitalization, Other)
  Sender: FDA-Public Use
  Company Number: US-BAYER-201019549NA

PATIENT
  Age: 17 Year
  Sex: Female
  Weight: 48.98 kg

DRUGS (19)
  1. YAZ [Suspect]
     Indication: PRODUCT USED FOR UNKNOWN INDICATION
     Route: 048
     Dates: start: 20080101, end: 20091001
  2. OCELLA [Suspect]
     Indication: CONTRACEPTION
     Dosage: UNK
     Dates: start: 20081001, end: 20091101
  3. PREVPAC [Concomitant]
  4. SINGULAIR [Concomitant]
  5. ZOMIG [Concomitant]
  6. YASMIN [Suspect]
     Indication: CONTRACEPTION
     Dosage: UNK UNK, UNK
     Route: 048
     Dates: start: 20080114, end: 20091001
  7. CEPHADYN [Concomitant]
  8. TRAMADOL HCL [Concomitant]
  9. DRYSOL [ALUMINIUM CHLORIDE] [Concomitant]
  10. METOCLOPRAMIDE [Concomitant]
  11. AZITHROMYCIN [Concomitant]
  12. PROMETHAZINE [Concomitant]
  13. NSAID'S [Concomitant]
     Indication: PAIN
     Dosage: UNK UNK, PRN
  14. AMOXICILLIN [Concomitant]
     Indication: PHARYNGITIS STREPTOCOCCAL
  15. IBUPROFEN [Concomitant]
  16. OMEPRAZOLE [Concomitant]
  17. ONDANSETRON HYDROCHLORIDE [Concomitant]
  18. URSODIOL [Concomitant]
  19. VENTOLIN HFA [Concomitant]

REACTIONS (11)
  - GALLBLADDER DISORDER [None]
  - PAIN [None]
  - CHEST PAIN [None]
  - PROCEDURAL PAIN [None]
  - DYSPEPSIA [None]
  - BILIARY DYSKINESIA [None]
  - CHOLECYSTITIS CHRONIC [None]
  - ABDOMINAL PAIN UPPER [None]
  - NAUSEA [None]
  - VOMITING [None]
  - GASTROOESOPHAGEAL REFLUX DISEASE [None]
